FAERS Safety Report 13238844 (Version 2)
Quarter: 2017Q1

REPORT INFORMATION
  Report Type: Spontaneous
  Country: US (occurrence: US)
  Receive Date: 20170216
  Receipt Date: 20170221
  Transmission Date: 20170428
  Serious: No
  Sender: FDA-Public Use
  Company Number: US-MISSION PHARMACAL COMPANY-1063177

PATIENT
  Age: 50 Year
  Sex: Male

DRUGS (1)
  1. THIOLA [Suspect]
     Active Substance: TIOPRONIN
     Indication: CYSTINOSIS
     Route: 065
     Dates: start: 20161014

REACTIONS (5)
  - Drug dose omission [Unknown]
  - Fluid retention [Unknown]
  - Peripheral swelling [Unknown]
  - Proteinuria [Unknown]
  - Pain [Unknown]
